FAERS Safety Report 12878378 (Version 4)
Quarter: 2016Q4

REPORT INFORMATION
  Report Type: Report from Study
  Country: US (occurrence: US)
  Receive Date: 20161024
  Receipt Date: 20161123
  Transmission Date: 20170207
  Serious: Yes (Hospitalization, Other)
  Sender: FDA-Public Use
  Company Number: US-BAYER-2016-199213

PATIENT
  Age: 72 Year
  Sex: Female

DRUGS (6)
  1. STIVARGA [Suspect]
     Active Substance: REGORAFENIB
     Indication: COLORECTAL CANCER
     Dosage: UNK
     Route: 048
     Dates: start: 20160815, end: 20160815
  2. STIVARGA [Suspect]
     Active Substance: REGORAFENIB
     Indication: COLORECTAL CANCER
     Dosage: 120 MG, QD
     Route: 048
     Dates: start: 20160912, end: 20161002
  3. STIVARGA [Suspect]
     Active Substance: REGORAFENIB
     Indication: COLORECTAL CANCER
     Dosage: DAILY DOSE 120 MG
     Route: 048
     Dates: start: 2016
  4. STIVARGA [Suspect]
     Active Substance: REGORAFENIB
     Indication: COLORECTAL CANCER
     Dosage: 80 MG, QD
     Route: 048
     Dates: start: 20160816, end: 20160904
  5. STIVARGA [Suspect]
     Active Substance: REGORAFENIB
     Indication: COLORECTAL CANCER
     Dosage: 160 MG, QD
     Route: 048
     Dates: start: 20161009, end: 20161014
  6. STIVARGA [Suspect]
     Active Substance: REGORAFENIB
     Indication: COLORECTAL CANCER
     Dosage: 160 MG, QD
     Route: 048
     Dates: start: 201610

REACTIONS (15)
  - Aphasia [None]
  - Headache [None]
  - Blood pressure increased [None]
  - Dysphagia [None]
  - Dyspnoea [None]
  - Dyspnoea [None]
  - Aspiration [None]
  - Heart rate increased [None]
  - Muscle spasms [Not Recovered/Not Resolved]
  - Pain [None]
  - Weight decreased [None]
  - Fatigue [None]
  - Muscle spasms [None]
  - Throat cancer [None]
  - Muscle spasms [None]

NARRATIVE: CASE EVENT DATE: 2016
